FAERS Safety Report 6500822-7 (Version None)
Quarter: 2009Q4

REPORT INFORMATION
  Report Type: 
  Country: None (occurrence: None)
  Receive Date: 20091216
  Receipt Date: 20090302
  Transmission Date: 20100525
  Serious: No
  Sender: FDA-Public Use
  Company Number: A0772665A

PATIENT
  Sex: Male

DRUGS (2)
  1. COMMIT [Suspect]
     Indication: DRUG USE FOR UNKNOWN INDICATION
  2. SLEEPING PILL [Concomitant]

REACTIONS (3)
  - ABNORMAL BEHAVIOUR [None]
  - DRUG INTERACTION [None]
  - INTENTIONAL DRUG MISUSE [None]
